FAERS Safety Report 10491688 (Version 3)
Quarter: 2016Q4

REPORT INFORMATION
  Report Type: Spontaneous
  Country: US (occurrence: US)
  Receive Date: 20141002
  Receipt Date: 20161020
  Transmission Date: 20170206
  Serious: No
  Sender: FDA-Public Use
  Company Number: US-GLAXOSMITHKLINE-A1057722A

PATIENT
  Sex: Female

DRUGS (5)
  1. BUTALBITAL [Concomitant]
     Active Substance: BUTALBITAL
  2. ADVAIR DISKUS [Suspect]
     Active Substance: FLUTICASONE PROPIONATE\SALMETEROL XINAFOATE
     Dosage: 1 PUFF(S), QD
     Route: 055
  3. PROVENTIL [Concomitant]
     Active Substance: ALBUTEROL
  4. ADVAIR DISKUS [Suspect]
     Active Substance: FLUTICASONE PROPIONATE\SALMETEROL XINAFOATE
     Indication: ASTHMA
     Dosage: 100/50 MCG
     Route: 055
     Dates: start: 2009, end: 2013
  5. TYLENOL #4 [Concomitant]

REACTIONS (7)
  - Neck pain [Unknown]
  - Hypertension [Unknown]
  - Underdose [Unknown]
  - Heart rate increased [Not Recovered/Not Resolved]
  - Mobility decreased [Unknown]
  - Pain in extremity [Unknown]
  - Vision blurred [Unknown]
